FAERS Safety Report 25571403 (Version 1)
Quarter: 2025Q3

REPORT INFORMATION
  Report Type: Spontaneous
  Country: EU (occurrence: EU)
  Receive Date: 20250717
  Receipt Date: 20250717
  Transmission Date: 20251020
  Serious: Yes (Other)
  Sender: MYLAN
  Company Number: EU-MYLANLABS-2025M1059084

PATIENT
  Age: 47 Year
  Sex: Female

DRUGS (6)
  1. DOXORUBICIN [Suspect]
     Active Substance: DOXORUBICIN
     Indication: Fallopian tube cancer stage III
  2. OLAPARIB [Suspect]
     Active Substance: OLAPARIB
     Indication: Fallopian tube cancer stage III
  3. CARBOPLATIN [Suspect]
     Active Substance: CARBOPLATIN
     Indication: Fallopian tube cancer stage III
  4. CARBOPLATIN [Suspect]
     Active Substance: CARBOPLATIN
  5. TRABECTEDIN [Suspect]
     Active Substance: TRABECTEDIN
     Indication: Fallopian tube cancer stage III
  6. PACLITAXEL [Suspect]
     Active Substance: PACLITAXEL
     Indication: Fallopian tube cancer stage III

REACTIONS (2)
  - Drug ineffective for unapproved indication [Unknown]
  - Off label use [Unknown]

NARRATIVE: CASE EVENT DATE: 20180501
